FAERS Safety Report 24454570 (Version 2)
Quarter: 2024Q4

REPORT INFORMATION
  Report Type: Report from Study
  Country: US (occurrence: US)
  Receive Date: 20241017
  Receipt Date: 20241018
  Transmission Date: 20250115
  Serious: No
  Sender: ROCHE
  Company Number: US-ROCHE-3479611

PATIENT
  Age: 26 Year
  Sex: Male

DRUGS (3)
  1. RITUXAN [Suspect]
     Active Substance: RITUXIMAB
     Indication: Immune thrombocytopenia
     Dosage: 964 MG/ 150.5 KG   375 MG, DATE OF SERVICE: 27/DEC/2023, 03/JAN/2024, 10/JAN/2024, ON 10/JAN/2024, H
     Route: 065
  2. RITUXAN [Suspect]
     Active Substance: RITUXIMAB
     Indication: Immunodeficiency common variable
     Dosage: 2 VIALS
     Route: 065
     Dates: start: 20231227
  3. RITUXAN [Suspect]
     Active Substance: RITUXIMAB
     Dosage: 2 VIALS
     Route: 065
     Dates: start: 20240103

REACTIONS (2)
  - Off label use [Unknown]
  - No adverse event [Unknown]
